FAERS Safety Report 16164599 (Version 1)
Quarter: 2019Q2

REPORT INFORMATION
  Report Type: Spontaneous
  Country: MX (occurrence: MX)
  Receive Date: 20190405
  Receipt Date: 20190405
  Transmission Date: 20190711
  Serious: Yes (Other)
  Sender: FDA-Public Use
  Company Number: MX-ANIPHARMA-2019-MX-000004

PATIENT
  Age: 49 Year
  Sex: Female
  Weight: 61 kg

DRUGS (9)
  1. SALOFALK [MESALAZINE] [Concomitant]
     Active Substance: MESALAMINE
     Dosage: 1 DF TID
     Route: 048
  2. DAFLON [Concomitant]
     Dosage: 1 DF TID
     Route: 048
  3. NO MATCH [Concomitant]
     Active Substance: UNSPECIFIED INGREDIENT
     Dosage: UNK
     Route: 065
  4. NO MATCH [Concomitant]
     Active Substance: UNSPECIFIED INGREDIENT
     Dosage: UNK
     Route: 065
  5. ATACAND [Suspect]
     Active Substance: CANDESARTAN CILEXETIL
     Indication: HYPERTENSION
     Dosage: 16 MG DAILY
     Route: 048
     Dates: start: 20090327
  6. NO MATCH [Concomitant]
     Active Substance: UNSPECIFIED INGREDIENT
     Dosage: 1 DF DAILY
     Route: 048
  7. OMEPRAZOL [Concomitant]
     Active Substance: OMEPRAZOLE
     Dosage: 1 AS REQUIRED
     Route: 048
  8. NO MATCH [Concomitant]
     Active Substance: UNSPECIFIED INGREDIENT
     Dosage: 1 DF TID
     Route: 048
  9. ESTROGEN NOS [Concomitant]
     Active Substance: ESTROGENS
     Dosage: UNK
     Route: 048

REACTIONS (15)
  - Dry mouth [Unknown]
  - Kidney infection [Recovered/Resolved]
  - Anxiety [Not Recovered/Not Resolved]
  - Colitis [Not Recovered/Not Resolved]
  - Irritable bowel syndrome [Unknown]
  - Flatulence [Not Recovered/Not Resolved]
  - Pain [Not Recovered/Not Resolved]
  - Hyperchlorhydria [Unknown]
  - Thirst [Unknown]
  - Arthralgia [Recovered/Resolved]
  - Plantar fasciitis [Recovered/Resolved]
  - Laboratory test abnormal [Unknown]
  - Hiatus hernia [Unknown]
  - Gastrooesophageal reflux disease [Unknown]
  - Dyspepsia [Unknown]

NARRATIVE: CASE EVENT DATE: 2009
